FAERS Safety Report 4365278-1 (Version None)
Quarter: 2004Q2

REPORT INFORMATION
  Report Type: 
  Country: None (occurrence: None)
  Receive Date: 20040521
  Receipt Date: 20040511
  Transmission Date: 20050107
  Serious: Yes (Hospitalization)
  Sender: FDA-Public Use
  Company Number: A02200401630

PATIENT
  Age: 36 Year
  Sex: Female

DRUGS (3)
  1. STILNOX (ZOLPIDEM) 10MG [Suspect]
     Indication: SLEEP DISORDER
     Dosage: SEE IMAGE
     Route: 048
     Dates: start: 20040509, end: 20040509
  2. STILNOX (ZOLPIDEM) 10MG [Suspect]
     Indication: SLEEP DISORDER
     Dosage: SEE IMAGE
     Route: 048
     Dates: start: 20040301, end: 20080508
  3. PROZAC [Concomitant]

REACTIONS (3)
  - CONVULSION [None]
  - DRUG ABUSER [None]
  - DRUG WITHDRAWAL CONVULSIONS [None]
